FAERS Safety Report 9198105 (Version 1)
Quarter: 2013Q1

REPORT INFORMATION
  Report Type: Spontaneous
  Country: CO (occurrence: CO)
  Receive Date: 20130329
  Receipt Date: 20130329
  Transmission Date: 20140127
  Serious: Yes (Hospitalization)
  Sender: FDA-Public Use
  Company Number: CO-ELI_LILLY_AND_COMPANY-CO201301009047

PATIENT
  Age: 58 Year
  Sex: Female

DRUGS (6)
  1. FORTEO [Suspect]
     Indication: OSTEOPOROSIS
     Dosage: 20 UG, QD
     Route: 058
     Dates: start: 201202
  2. FORTEO [Suspect]
     Dosage: 20 UG, QD
     Route: 058
     Dates: start: 20130117
  3. ACETAMINOPHEN [Concomitant]
     Dosage: UNK, UNKNOWN
     Route: 065
  4. NAPROXEN [Concomitant]
     Dosage: UNK, UNKNOWN
     Route: 065
  5. RANITIDINE [Concomitant]
     Dosage: UNK, UNKNOWN
     Route: 065
  6. BISACODYL [Concomitant]
     Dosage: UNK, UNKNOWN
     Route: 065

REACTIONS (2)
  - Cervical myelopathy [Recovering/Resolving]
  - Osteoarthritis [Recovering/Resolving]
